FAERS Safety Report 6398147-6 (Version None)
Quarter: 2009Q3

REPORT INFORMATION
  Report Type: 
  Country: None (occurrence: None)
  Receive Date: 20090923
  Receipt Date: 20090917
  Transmission Date: 20100115
  Serious: Yes (Hospitalization)
  Sender: FDA-Public Use
  Company Number: THYM-1001207

PATIENT
  Age: 4 Year
  Sex: Male
  Weight: 12.7 kg

DRUGS (2)
  1. THYMOGLOBULIN [Suspect]
     Indication: HEART TRANSPLANT
     Dosage: 25 MG, QD, INTRAVENOUS;  INTRAVENOUS
     Route: 042
     Dates: start: 20090916, end: 20090916
  2. THYMOGLOBULIN [Suspect]
     Indication: HEART TRANSPLANT REJECTION
     Dosage: 25 MG, QD, INTRAVENOUS;  INTRAVENOUS
     Route: 042
     Dates: start: 20090916, end: 20090916

REACTIONS (2)
  - CARDIAC ARREST [None]
  - HEART TRANSPLANT REJECTION [None]
